FAERS Safety Report 4902546-6 (Version None)
Quarter: 2006Q1

REPORT INFORMATION
  Report Type: 
  Country: None (occurrence: None)
  Receive Date: 20060202
  Receipt Date: 20060119
  Transmission Date: 20060701
  Serious: Yes (Other)
  Sender: FDA-Public Use
  Company Number: DSK-2006-00577

PATIENT
  Age: 73 Year
  Sex: Female

DRUGS (2)
  1. SALIGREN [Suspect]
     Indication: SJOGREN'S SYNDROME
     Dosage: 90 MG (30 MG, 3 IN 1 D),; 60 MG (30 MG, 2 IN 1 D)
     Route: 048
     Dates: start: 20050506, end: 20050512
  2. SALIGREN [Suspect]
     Indication: SJOGREN'S SYNDROME
     Dosage: 90 MG (30 MG, 3 IN 1 D),; 60 MG (30 MG, 2 IN 1 D)
     Route: 048
     Dates: start: 20050513, end: 20050521

REACTIONS (4)
  - COMPLETED SUICIDE [None]
  - HYPERHIDROSIS [None]
  - TREMOR [None]
  - VISUAL ACUITY REDUCED [None]
